FAERS Safety Report 25780768 (Version 2)
Quarter: 2025Q4

REPORT INFORMATION
  Report Type: Report from Study
  Country: EU (occurrence: EU)
  Receive Date: 20250909
  Receipt Date: 20251004
  Transmission Date: 20260117
  Serious: Yes (Hospitalization, Other)
  Sender: UCB
  Company Number: EU-UCBSA-2025056249

PATIENT
  Age: 30 Year
  Sex: Male

DRUGS (2)
  1. CIMZIA [Suspect]
     Active Substance: CERTOLIZUMAB PEGOL
     Indication: Psoriatic arthropathy
     Dosage: UNK, EV 2 WEEKS(QOW)
     Route: 058
     Dates: start: 201804
  2. METHOTREXATE SODIUM [Concomitant]
     Active Substance: METHOTREXATE SODIUM
     Indication: Product used for unknown indication
     Dosage: 10 MILLIGRAM (DISCONTINUED)
     Route: 048
     Dates: end: 202112

REACTIONS (4)
  - Purpura [Recovered/Resolved]
  - Cutaneous vasculitis [Unknown]
  - Abdominal pain [Recovered/Resolved]
  - Injection site rash [Recovered/Resolved]

NARRATIVE: CASE EVENT DATE: 20240101
